FAERS Safety Report 4946229-5 (Version None)
Quarter: 2006Q1

REPORT INFORMATION
  Report Type: 
  Country: None (occurrence: None)
  Receive Date: 20060201
  Receipt Date: 20051230
  Transmission Date: 20060701
  Serious: No
  Sender: FDA-Public Use
  Company Number: 2006PV006487

PATIENT
  Age: 44 Year
  Sex: Male
  Weight: 86.1834 kg

DRUGS (3)
  1. BYETTA [Suspect]
     Indication: DIABETES MELLITUS NON-INSULIN-DEPENDENT
     Dosage: 5 MCG; BID; SC
     Route: 058
     Dates: start: 20051210
  2. AVANDIA [Concomitant]
  3. GLUCOVANCE [Concomitant]

REACTIONS (4)
  - DYSPEPSIA [None]
  - FLATULENCE [None]
  - HEADACHE [None]
  - NAUSEA [None]
